FAERS Safety Report 5254421-8 (Version None)
Quarter: 2007Q1

REPORT INFORMATION
  Report Type: 
  Country: None (occurrence: None)
  Receive Date: 20070302
  Receipt Date: 20070223
  Transmission Date: 20070707
  Serious: Yes (Hospitalization)
  Sender: FDA-Public Use
  Company Number: DE-SHR-DE-2007-007027

PATIENT
  Sex: Female

DRUGS (2)
  1. MIRENA [Suspect]
     Dosage: 20 A?G/DAY, CONT
     Route: 015
     Dates: start: 20061101
  2. METIMAZOL [Concomitant]

REACTIONS (1)
  - BONE MARROW FAILURE [None]
